FAERS Safety Report 21627306 (Version 1)
Quarter: 2022Q4

REPORT INFORMATION
  Report Type: Spontaneous
  Country: DE (occurrence: DE)
  Receive Date: 20221122
  Receipt Date: 20221122
  Transmission Date: 20230112
  Serious: Yes (Hospitalization, Other)
  Sender: FDA-Public Use
  Company Number: DE-002147023-PHNU2000DE00852

PATIENT

DRUGS (2)
  1. DICLOFENAC DIETHYLAMINE [Suspect]
     Active Substance: DICLOFENAC DIETHYLAMINE
     Indication: Tendon disorder
     Dosage: UNK, QD
     Route: 061
     Dates: start: 20000301, end: 20000313
  2. AMOXICILLIN\CLAVULANATE POTASSIUM [Concomitant]
     Active Substance: AMOXICILLIN\CLAVULANATE POTASSIUM
     Indication: Streptococcal infection
     Dosage: UNK
     Route: 048
     Dates: start: 200001, end: 200004

REACTIONS (6)
  - Haemorrhage [Unknown]
  - Hypospadias [Unknown]
  - Premature delivery [Unknown]
  - Premature rupture of membranes [Unknown]
  - Exposure during pregnancy [Unknown]
  - Peripartum haemorrhage [Unknown]

NARRATIVE: CASE EVENT DATE: 20000416
